FAERS Safety Report 19212715 (Version 2)
Quarter: 2021Q2

REPORT INFORMATION
  Report Type: Spontaneous
  Country: US (occurrence: US)
  Receive Date: 20210504
  Receipt Date: 20210507
  Transmission Date: 20210717
  Serious: No
  Sender: FDA-Public Use
  Company Number: US-UNITED THERAPEUTICS-UNT-2021-004474

PATIENT
  Age: 54 Year
  Sex: Female

DRUGS (10)
  1. TYVASO [Suspect]
     Active Substance: TREPROSTINIL
     Indication: PULMONARY ARTERIAL HYPERTENSION
     Dosage: UNK
     Dates: start: 20210309
  2. UPTRAVI [Suspect]
     Active Substance: SELEXIPAG
     Indication: PULMONARY HYPERTENSION
     Dosage: 400 ?G, BID
     Route: 048
  3. TYVASO [Suspect]
     Active Substance: TREPROSTINIL
     Dosage: UNK
  4. TYVASO [Suspect]
     Active Substance: TREPROSTINIL
     Dosage: 18?54 ?G, QID
  5. UPTRAVI [Suspect]
     Active Substance: SELEXIPAG
     Dosage: 200 ?G
     Route: 048
     Dates: start: 202103
  6. TRACLEER [Concomitant]
     Active Substance: BOSENTAN
     Indication: PULMONARY HYPERTENSION
     Dosage: 250 MG
     Route: 048
  7. TYVASO [Suspect]
     Active Substance: TREPROSTINIL
     Dosage: 18 ?G, QID
     Dates: start: 202103
  8. TYVASO [Suspect]
     Active Substance: TREPROSTINIL
     Dosage: 36 ?G
     Dates: start: 202103
  9. TYVASO [Suspect]
     Active Substance: TREPROSTINIL
     Dosage: 42 ?G, UNK
  10. WARFARIN [Concomitant]
     Active Substance: WARFARIN
     Indication: PRODUCT USED FOR UNKNOWN INDICATION
     Dosage: UNK
     Route: 065

REACTIONS (19)
  - Dizziness [Unknown]
  - Anxiety [Unknown]
  - Pain in extremity [Unknown]
  - Sinus congestion [Not Recovered/Not Resolved]
  - Dyspepsia [Unknown]
  - Nausea [Unknown]
  - Vomiting [Recovered/Resolved]
  - Decreased appetite [Unknown]
  - Pain in jaw [Unknown]
  - Feeling jittery [Unknown]
  - Alopecia [Unknown]
  - Insomnia [Unknown]
  - Productive cough [Unknown]
  - Panic attack [Unknown]
  - Cough [Unknown]
  - Ocular hyperaemia [Unknown]
  - Throat irritation [Unknown]
  - Headache [Unknown]
  - Nasopharyngitis [Unknown]

NARRATIVE: CASE EVENT DATE: 202103
